FAERS Safety Report 17839399 (Version 1)
Quarter: 2020Q2

REPORT INFORMATION
  Report Type: Spontaneous
  Country: US (occurrence: US)
  Receive Date: 20200528
  Receipt Date: 20200528
  Transmission Date: 20200714
  Serious: No
  Sender: FDA-Public Use
  Company Number: None

PATIENT
  Age: 52 Year
  Sex: Male

DRUGS (1)
  1. FARYDAK [Suspect]
     Active Substance: PANOBINOSTAT
     Route: 048
     Dates: start: 20200512

REACTIONS (3)
  - Therapy interrupted [None]
  - Off label use [None]
  - COVID-19 [None]

NARRATIVE: CASE EVENT DATE: 20200528
